FAERS Safety Report 8362573-6 (Version None)
Quarter: 2012Q1

REPORT INFORMATION
  Report Type: 
  Country: None (occurrence: None)
  Receive Date: 20120323
  Receipt Date: 20111223
  Transmission Date: 20120608
  Serious: Yes (Other)
  Sender: FDA-Public Use
  Company Number: 163-21880-11123495

PATIENT
  Age: 76 Year
  Sex: Male

DRUGS (1)
  1. REVLIMID [Suspect]
     Indication: MULTIPLE MYELOMA
     Dosage: 10 MG, EVERY OTHER DAY FOR 14 DAYS, PO
     Route: 048
     Dates: start: 20111101

REACTIONS (3)
  - HERPES ZOSTER [None]
  - CONSTIPATION [None]
  - RENAL FAILURE [None]
